FAERS Safety Report 7974063-0 (Version None)
Quarter: 2011Q4

REPORT INFORMATION
  Report Type: 
  Country: None (occurrence: None)
  Receive Date: 20111213
  Receipt Date: 20111115
  Transmission Date: 20120403
  Serious: Yes (Hospitalization)
  Sender: FDA-Public Use
  Company Number: BG-GLAXOSMITHKLINE-Z0012826A

PATIENT
  Sex: Male
  Weight: 102 kg

DRUGS (8)
  1. NIZORAL [Suspect]
     Dosage: 200MG TWICE PER DAY
     Route: 048
     Dates: start: 20111011, end: 20111116
  2. BLINDED TRIAL MEDICATION [Suspect]
     Indication: ACUTE CORONARY SYNDROME
     Route: 048
     Dates: start: 20110603
  3. TARKA [Concomitant]
     Dates: start: 20111111
  4. FOLIC ACID [Concomitant]
     Dosage: .4MG THREE TIMES PER DAY
     Route: 048
     Dates: start: 20111111, end: 20111116
  5. ASPIRIN [Concomitant]
     Dosage: 100MG PER DAY
     Dates: start: 20110531, end: 20111113
  6. ISODINIT [Concomitant]
     Dosage: 20MG THREE TIMES PER DAY
     Dates: start: 20110531, end: 20111113
  7. PRASUGREL [Concomitant]
     Dosage: 15MG PER DAY
     Route: 048
     Dates: start: 20111001
  8. METHOTREXATE [Concomitant]
     Indication: PSORIASIS
     Dates: end: 20111113

REACTIONS (1)
  - PANCYTOPENIA [None]
